FAERS Safety Report 20040049 (Version 2)
Quarter: 2021Q4

REPORT INFORMATION
  Report Type: Report from Study
  Country: MX (occurrence: MX)
  Receive Date: 20211106
  Receipt Date: 20211213
  Transmission Date: 20220303
  Serious: Yes (Death, Other)
  Sender: FDA-Public Use
  Company Number: MX-NOVARTISPH-NVSC2021MX254024

PATIENT
  Age: 88 Year
  Sex: Male
  Weight: 80 kg

DRUGS (5)
  1. DIOVAN [Suspect]
     Active Substance: VALSARTAN
     Indication: Hypertension
     Dosage: 160 MG, QD,STARTED 10 YEARS AGO (DOES NOT SPECIFY DATE)
     Route: 048
  2. DIOVAN [Suspect]
     Active Substance: VALSARTAN
     Dosage: UNK
     Route: 065
  3. HYDROCHLOROTHIAZIDE\VALSARTAN [Suspect]
     Active Substance: HYDROCHLOROTHIAZIDE\VALSARTAN
     Indication: Product used for unknown indication
     Dosage: UNK
     Route: 065
  4. RIVOTRIL [Concomitant]
     Active Substance: CLONAZEPAM
     Indication: Insomnia
     Dosage: UNK UNK, QD
     Route: 065
  5. TRIMEBUTINE [Concomitant]
     Active Substance: TRIMEBUTINE
     Indication: Colitis
     Dosage: 1 DOSAGE FORM, BEFORE MEAL
     Route: 065

REACTIONS (3)
  - Cerebrovascular accident [Fatal]
  - Prostate cancer [Unknown]
  - Hypertension [Not Recovered/Not Resolved]

NARRATIVE: CASE EVENT DATE: 20210622
